FAERS Safety Report 10184866 (Version 1)
Quarter: 2014Q2

REPORT INFORMATION
  Report Type: Spontaneous
  Country: US (occurrence: None)
  Receive Date: 20140520
  Receipt Date: 20140520
  Transmission Date: 20141212
  Serious: Yes (Other)
  Sender: FDA-Public Use
  Company Number: None

PATIENT
  Age: 65 Year
  Sex: Female
  Weight: 92.99 kg

DRUGS (5)
  1. PROLIA [Suspect]
     Indication: OSTEOPOROSIS
     Dosage: 1 SHOT
     Dates: start: 20140423
  2. LISINOPRIL [Concomitant]
  3. VITAMIN D [Concomitant]
  4. BUPROPION [Concomitant]
  5. BABY ASPIRIN [Concomitant]

REACTIONS (4)
  - Blister [None]
  - Rash [None]
  - Pruritus [None]
  - Burning sensation [None]
